FAERS Safety Report 5377824-X (Version None)
Quarter: 2007Q3

REPORT INFORMATION
  Report Type: 
  Country: None (occurrence: None)
  Receive Date: 20070703
  Receipt Date: 20070622
  Transmission Date: 20080115
  Serious: Yes (Other)
  Sender: FDA-Public Use
  Company Number: US-PFIZER INC-2007052730

PATIENT
  Sex: Male
  Weight: 68 kg

DRUGS (1)
  1. LIPITOR [Suspect]
     Indication: PROPHYLAXIS

REACTIONS (4)
  - ABNORMAL BEHAVIOUR [None]
  - AMNESIA [None]
  - ARTHROPATHY [None]
  - MYOCARDIAL INFARCTION [None]
